FAERS Safety Report 5896425-8 (Version None)
Quarter: 2008Q3

REPORT INFORMATION
  Report Type: 
  Country: None (occurrence: None)
  Receive Date: 20080924
  Receipt Date: 20070719
  Transmission Date: 20090109
  Serious: Yes (Other)
  Sender: FDA-Public Use
  Company Number: US-BAYER-200711733BWH

PATIENT
  Sex: Male

DRUGS (1)
  1. AVELOX [Suspect]
     Indication: ACUTE SINUSITIS
     Route: 048

REACTIONS (3)
  - ANAPHYLACTIC SHOCK [None]
  - RESPIRATORY ARREST [None]
  - SWELLING [None]
